FAERS Safety Report 8366707-9 (Version None)
Quarter: 2012Q2

REPORT INFORMATION
  Report Type: 
  Country: None (occurrence: None)
  Receive Date: 20120517
  Receipt Date: 20120514
  Transmission Date: 20120825
  Serious: Yes (Disabling, Other)
  Sender: FDA-Public Use
  Company Number: AT-PFIZER INC-2012116612

PATIENT
  Age: 22 Year
  Sex: Female

DRUGS (16)
  1. EUTHYROX [Concomitant]
     Dosage: 75 MG, UNK
     Dates: start: 20090101, end: 20100101
  2. METOPROLOL TARTRATE [Concomitant]
     Dosage: 95 MG, UNK
     Dates: start: 20111101
  3. INDERAL [Concomitant]
     Dosage: 10 MG DAILY
     Dates: start: 20090101, end: 20100101
  4. EUTHYROX [Concomitant]
     Dosage: 100 MG, UNK
     Dates: start: 20100101
  5. TRAZODONE HCL [Concomitant]
     Dosage: 150 MG, UNK
     Dates: start: 20100101, end: 20110401
  6. ZIPRASIDONE HYDROCHLORIDE [Suspect]
     Dosage: 60 MG DAILY
     Dates: start: 20090101, end: 20100101
  7. LITHIUM CARBONATE [Suspect]
     Dosage: 950 MG DAILY
     Dates: start: 20110401
  8. ABILIFY [Suspect]
     Dosage: 15 MG DAILY
     Dates: start: 20100101
  9. EUTHYROX [Concomitant]
     Dosage: 50 MG, UNK
     Dates: start: 20080101, end: 20090101
  10. TRAZODONE HCL [Concomitant]
     Dosage: 200 MG, UNK
     Dates: start: 20090101, end: 20100101
  11. SUCRALFATE [Concomitant]
     Dosage: 3 G, UNK
     Dates: start: 20090101, end: 20100101
  12. ESCITALOPRAM [Suspect]
     Dosage: 20 MG DAILY
     Dates: start: 20090101
  13. SEROQUEL [Suspect]
     Dosage: 35 MG DAILY
     Dates: start: 20100101, end: 20110401
  14. EDRONAX [Concomitant]
     Dosage: 6 MG, UNK
     Dates: start: 20110401
  15. PANTOPRAZOLE SODIUM [Concomitant]
     Dosage: 20 MG, UNK
     Dates: start: 20100101
  16. BISOSTAD [Concomitant]
     Dosage: 2.5 MG, UNK
     Dates: start: 20100101, end: 20111101

REACTIONS (5)
  - DEPRESSION [None]
  - SPINAL PAIN [None]
  - C-REACTIVE PROTEIN INCREASED [None]
  - WEIGHT INCREASED [None]
  - PSYCHOTIC DISORDER [None]
